FAERS Safety Report 21507849 (Version 1)
Quarter: 2022Q4

REPORT INFORMATION
  Report Type: Other
  Country: AU (occurrence: AU)
  Receive Date: 20221026
  Receipt Date: 20221026
  Transmission Date: 20230113
  Serious: Yes (Other)
  Sender: FDA-Public Use
  Company Number: AU-CELLTRION INC.-2022AU017388

PATIENT

DRUGS (8)
  1. RITUXIMAB [Suspect]
     Active Substance: RITUXIMAB
     Indication: Product used for unknown indication
  2. BENDAMUSTINE [Suspect]
     Active Substance: BENDAMUSTINE
     Indication: Product used for unknown indication
  3. PEMBROLIZUMAB [Suspect]
     Active Substance: PEMBROLIZUMAB
     Indication: Product used for unknown indication
  4. BRENTUXIMAB VEDOTIN [Concomitant]
     Active Substance: BRENTUXIMAB VEDOTIN
  5. DOXORUBICIN HYDROCHLORIDE [Concomitant]
     Active Substance: DOXORUBICIN HYDROCHLORIDE
  6. BLEOMYCIN [Concomitant]
     Active Substance: BLEOMYCIN SULFATE
  7. DACARBAZINE [Concomitant]
     Active Substance: DACARBAZINE
  8. VINBLASTINE SULFATE [Concomitant]
     Active Substance: VINBLASTINE SULFATE

REACTIONS (4)
  - Tumour obstruction [Unknown]
  - Pneumonia [Unknown]
  - Disease progression [Unknown]
  - Drug ineffective [Unknown]
